FAERS Safety Report 24448066 (Version 2)
Quarter: 2025Q2

REPORT INFORMATION
  Report Type: Spontaneous
  Country: US (occurrence: US)
  Receive Date: 20241016
  Receipt Date: 20250429
  Transmission Date: 20250717
  Serious: No
  Sender: BRISTOL-MYERS SQUIBB COMPANY
  Company Number: US-BRISTOL-MYERS SQUIBB COMPANY-2024-163223

PATIENT
  Age: 58 Year
  Sex: Male

DRUGS (1)
  1. ISTODAX [Suspect]
     Active Substance: ROMIDEPSIN
     Indication: T-cell prolymphocytic leukaemia
     Route: 042
     Dates: end: 202501

REACTIONS (1)
  - Off label use [Unknown]
